FAERS Safety Report 17229066 (Version 2)
Quarter: 2020Q1

REPORT INFORMATION
  Report Type: Report from Study
  Country: US (occurrence: US)
  Receive Date: 20200103
  Receipt Date: 20200228
  Transmission Date: 20200409
  Serious: Yes (Hospitalization)
  Sender: FDA-Public Use
  Company Number: US-EMD SERONO-9137794

PATIENT
  Age: 49 Year
  Sex: Female

DRUGS (2)
  1. MAVENCLAD [Suspect]
     Active Substance: CLADRIBINE
     Indication: MULTIPLE SCLEROSIS
     Dosage: MONTH ONE THERAPY: TOTAL DOSE OF 70 MG.
     Route: 048
     Dates: start: 20191105, end: 20191109
  2. MAVENCLAD [Suspect]
     Active Substance: CLADRIBINE
     Dosage: MONTH TWO THERAPY: TOTAL DOSE OF 70 MG.
     Route: 048
     Dates: start: 20191202, end: 20191206

REACTIONS (19)
  - Head injury [Unknown]
  - Aphasia [Unknown]
  - Wound [Unknown]
  - Otitis externa [Recovering/Resolving]
  - Lymphocyte count decreased [Recovering/Resolving]
  - Fatigue [Unknown]
  - Erythema [Recovered/Resolved]
  - Hypokinesia [Unknown]
  - Fall [Unknown]
  - Pain in extremity [Recovered/Resolved]
  - Muscular weakness [Unknown]
  - Cough [Unknown]
  - Pruritus [Unknown]
  - Hypersomnia [Unknown]
  - Contusion [Unknown]
  - Scratch [Unknown]
  - Eye movement disorder [Not Recovered/Not Resolved]
  - Haematemesis [Unknown]
  - Vision blurred [Recovered/Resolved]

NARRATIVE: CASE EVENT DATE: 201912
